FAERS Safety Report 5582815-X (Version None)
Quarter: 2007Q4

REPORT INFORMATION
  Report Type: 
  Country: None (occurrence: None)
  Receive Date: 20071231
  Receipt Date: 20071221
  Transmission Date: 20080405
  Serious: Yes (Other)
  Sender: FDA-Public Use
  Company Number: CHPA2007CA14232

PATIENT
  Age: 6 Year
  Sex: Male

DRUGS (1)
  1. DEXTROMETHORPHAN HYDROBROMIDE [Suspect]
     Dosage: ONCE SINGLE, ORAL
     Route: 048
     Dates: start: 20071221, end: 20071221

REACTIONS (2)
  - DYSPNOEA [None]
  - RASH [None]
